FAERS Safety Report 6083499-7 (Version None)
Quarter: 2009Q1

REPORT INFORMATION
  Report Type: 
  Country: None (occurrence: None)
  Receive Date: 20090219
  Receipt Date: 20090210
  Transmission Date: 20090719
  Serious: Yes (Hospitalization, Other)
  Sender: FDA-Public Use
  Company Number: SE-JNJFOC-20090202449

PATIENT
  Age: 5 Year
  Sex: Female

DRUGS (2)
  1. REMICADE [Suspect]
     Indication: CROHN'S DISEASE
     Dosage: TOTAL OF 3 INFUSIONS
     Route: 042
  2. HUMIRA [Suspect]
     Indication: CROHN'S DISEASE
     Dosage: 2 TREATMENTS ON UNSPECIFIED DATES

REACTIONS (4)
  - CONDITION AGGRAVATED [None]
  - CROHN'S DISEASE [None]
  - DRUG INEFFECTIVE [None]
  - TUBERCULOSIS GASTROINTESTINAL [None]
